FAERS Safety Report 24838266 (Version 5)
Quarter: 2025Q3

REPORT INFORMATION
  Report Type: Spontaneous
  Country: US (occurrence: US)
  Receive Date: 20250113
  Receipt Date: 20250801
  Transmission Date: 20251021
  Serious: No
  Sender: PFIZER
  Company Number: US-PFIZER INC-202500005488

PATIENT
  Age: 70 Year
  Sex: Male

DRUGS (2)
  1. INLYTA [Suspect]
     Active Substance: AXITINIB
     Indication: Renal cancer
     Dosage: 5 MG, 2X/DAY (MORNING AND IN THE EVENING)
     Route: 048
  2. INLYTA [Suspect]
     Active Substance: AXITINIB
     Indication: Hypothyroidism
     Dosage: 3 MG, 2X/DAY (1 MG TAB TAKE 3 TAB IN MORNING + 3 TAB IN EVENING)
     Route: 048

REACTIONS (2)
  - Diarrhoea [Unknown]
  - Product dose omission issue [Unknown]
